FAERS Safety Report 14963327 (Version 2)
Quarter: 2018Q2

REPORT INFORMATION
  Report Type: Report from Study
  Country: US (occurrence: US)
  Receive Date: 20180601
  Receipt Date: 20180611
  Transmission Date: 20180711
  Serious: No
  Sender: FDA-Public Use
  Company Number: PHEH2018US020643

PATIENT
  Sex: Female
  Weight: 62 kg

DRUGS (1)
  1. ILARIS [Suspect]
     Active Substance: CANAKINUMAB
     Indication: STILL^S DISEASE
     Dosage: 240 MG, QMO
     Route: 058

REACTIONS (4)
  - Pyrexia [Unknown]
  - Back pain [Unknown]
  - Arthralgia [Unknown]
  - Pain in extremity [Unknown]
